FAERS Safety Report 5197350-0 (Version None)
Quarter: 2006Q4

REPORT INFORMATION
  Report Type: 
  Country: None (occurrence: None)
  Receive Date: 20061228
  Receipt Date: 20061213
  Transmission Date: 20070319
  Serious: Yes (Congenital Anomaly)
  Sender: FDA-Public Use
  Company Number: E2090-00153-SPO-JP

PATIENT
  Sex: Male

DRUGS (2)
  1. EXCEGRAN (ZONISAMIDE) [Suspect]
     Indication: DRUG EXPOSURE DURING PREGNANCY
     Dosage: 300 MG, 1 IN 1 D, TRANSPLACENTAL
     Route: 064
  2. VALPROATE SODIUM [Concomitant]

REACTIONS (8)
  - APRAXIA [None]
  - CONGENITAL HYDROCEPHALUS [None]
  - DRUG EXPOSURE DURING PREGNANCY [None]
  - HIP DYSPLASIA [None]
  - HYPOSPADIAS [None]
  - MENINGOCELE [None]
  - PATENT DUCTUS ARTERIOSUS [None]
  - VENTRICULAR SEPTAL DEFECT [None]
